FAERS Safety Report 5896138-2 (Version None)
Quarter: 2008Q3

REPORT INFORMATION
  Report Type: 
  Country: None (occurrence: None)
  Receive Date: 20080924
  Receipt Date: 20071105
  Transmission Date: 20090109
  Serious: Yes (Hospitalization)
  Sender: FDA-Public Use
  Company Number: US-ASTRAZENECA-2007UW09654

PATIENT
  Age: 68 Year
  Sex: Male
  Weight: 74.8 kg

DRUGS (2)
  1. SEROQUEL [Suspect]
     Indication: BIPOLAR DISORDER
     Route: 048
     Dates: start: 20020101, end: 20060701
  2. RISPERDAL [Concomitant]
     Indication: BIPOLAR DISORDER
     Dates: start: 20030611, end: 20060701

REACTIONS (3)
  - DEPRESSION [None]
  - PAIN [None]
  - TYPE 2 DIABETES MELLITUS [None]
